FAERS Safety Report 4429274-8 (Version None)
Quarter: 2004Q3

REPORT INFORMATION
  Report Type: 
  Country: None (occurrence: None)
  Receive Date: 20040818
  Receipt Date: 20040818
  Transmission Date: 20050211
  Serious: Yes (Life-Threatening, Hospitalization)
  Sender: FDA-Public Use
  Company Number: None

PATIENT
  Age: 65 Year
  Sex: Male
  Weight: 92.2 kg

DRUGS (6)
  1. INTERLEUKIN-2 [Suspect]
     Indication: RENAL CELL CARCINOMA STAGE UNSPECIFIED
     Dosage: 600,000 UNITS/KG/DOSE TOTAL IL-2= 55 MILLION UNITS PER WEEK
     Dates: start: 20040726, end: 20040811
  2. DILAUDID [Concomitant]
  3. LORAZEPAM [Concomitant]
  4. ZOFRAN [Concomitant]
  5. ANTABUSE [Concomitant]
  6. ZYRTEC [Concomitant]

REACTIONS (3)
  - CEREBROVASCULAR ACCIDENT [None]
  - HYPOTENSION [None]
  - MYOCARDIAL INFARCTION [None]
